FAERS Safety Report 17543726 (Version 1)
Quarter: 2020Q1

REPORT INFORMATION
  Report Type: Spontaneous
  Country: DE (occurrence: DE)
  Receive Date: 20200316
  Receipt Date: 20200316
  Transmission Date: 20200409
  Serious: Yes (Hospitalization)
  Sender: FDA-Public Use
  Company Number: DE-TEVA-2020-DE-1200379

PATIENT
  Age: 59 Year
  Sex: Female

DRUGS (3)
  1. AMLODIPIN [Concomitant]
     Active Substance: AMLODIPINE BESYLATE
     Dosage: 5 MILLIGRAM DAILY; 5 MG, 1-0-0-0
  2. RAMIPRIL. [Suspect]
     Active Substance: RAMIPRIL
     Dosage: 5 MILLIGRAM DAILY; 2.5 MG, 2-0-2-0
     Route: 065
  3. L-THYROXIN AL 50 MCG [Concomitant]
     Dosage: 50 MICROGRAM DAILY; 50 MCG, 1-0-0-0

REACTIONS (3)
  - Chest pain [Unknown]
  - Dizziness [Unknown]
  - Hypertension [Unknown]
